FAERS Safety Report 14631001 (Version 1)
Quarter: 2018Q1

REPORT INFORMATION
  Report Type: Spontaneous
  Country: US (occurrence: US)
  Receive Date: 20180313
  Receipt Date: 20180313
  Transmission Date: 20180509
  Serious: No
  Sender: FDA-Public Use
  Company Number: US-PERRIGO-18US001325

PATIENT
  Age: 65 Year
  Sex: Male
  Weight: 83.9 kg

DRUGS (18)
  1. VITAMIN B12 [Concomitant]
     Active Substance: CYANOCOBALAMIN
     Indication: SUPPLEMENTATION THERAPY
     Dosage: 1000 MCG, QD
     Route: 048
  2. CHONDROITIN GLUCOSAMIN [Concomitant]
     Active Substance: CHONDROITIN SULFATE A\GLUCOSAMINE
     Indication: ARTHRALGIA
     Dosage: UNK
     Route: 048
     Dates: start: 2008
  3. CHLORDIAZEPOXIDE HCL AND CLIDINIUM BROMIDE [Concomitant]
     Active Substance: CHLORDIAZEPOXIDE HYDROCHLORIDE\CLIDINIUM BROMIDE
     Indication: STRESS
  4. PANTOPRAZOLE [Concomitant]
     Active Substance: PANTOPRAZOLE
     Indication: GASTROOESOPHAGEAL REFLUX DISEASE
     Dosage: 40 MG, QD
     Route: 048
     Dates: start: 2010
  5. ROSUVASTATIN CALCIUM. [Concomitant]
     Active Substance: ROSUVASTATIN CALCIUM
     Indication: BLOOD CHOLESTEROL INCREASED
     Dosage: 20 MG, QD
     Route: 048
     Dates: start: 201708
  6. COQ 10 [Concomitant]
     Active Substance: UBIDECARENONE
     Indication: SUPPLEMENTATION THERAPY
     Dosage: 200 MG, QD
     Route: 048
  7. MAGNESIUM [Concomitant]
     Active Substance: MAGNESIUM
     Indication: SUPPLEMENTATION THERAPY
     Dosage: 500 MG, QD
     Route: 048
  8. BABY ASPIRIN [Concomitant]
     Active Substance: ASPIRIN
     Indication: PROPHYLAXIS
     Dosage: 81 MG, QD
     Route: 048
  9. TESTOSTERONE. [Suspect]
     Active Substance: TESTOSTERONE
     Indication: BLOOD TESTOSTERONE DECREASED
     Dosage: 60 MG, QD
     Route: 061
     Dates: start: 201711, end: 201802
  10. TESTOSTERONE. [Suspect]
     Active Substance: TESTOSTERONE
     Dosage: 30 MG TO RIGHT ARMPIT ONLY, QD
     Route: 061
     Dates: start: 201802
  11. CHLORDIAZEPOXIDE HCL AND CLIDINIUM BROMIDE [Concomitant]
     Active Substance: CHLORDIAZEPOXIDE HYDROCHLORIDE\CLIDINIUM BROMIDE
     Indication: NAUSEA
     Dosage: UNK
     Route: 048
  12. SERTRALINE [Concomitant]
     Active Substance: SERTRALINE HYDROCHLORIDE
     Indication: DEPRESSION
     Dosage: 100 MG, QD
     Route: 048
     Dates: start: 2006
  13. CALCIUM + VITAMIN D                /09279801/ [Concomitant]
     Active Substance: CALCIUM\CHOLECALCIFEROL
     Indication: SUPPLEMENTATION THERAPY
     Dosage: UNK
     Route: 048
  14. MULTIVITAMIN                       /07504101/ [Concomitant]
     Active Substance: VITAMINS
     Indication: SUPPLEMENTATION THERAPY
     Dosage: UNK
     Route: 048
  15. ANDROGEL [Concomitant]
     Active Substance: TESTOSTERONE
     Indication: BLOOD TESTOSTERONE DECREASED
     Dosage: ONE APPLICATION TO LEFT SHOULDER, QD
     Route: 061
     Dates: start: 201802
  16. BUPROPION HYDROCHLORIDE XL [Concomitant]
     Active Substance: BUPROPION HYDROCHLORIDE
     Indication: DEPRESSION
     Dosage: 300 MG, QD
     Route: 048
     Dates: start: 2006
  17. LOSARTAN AND HYDROCHLOROTHIAZIDE [Concomitant]
     Active Substance: HYDROCHLOROTHIAZIDE\LOSARTAN POTASSIUM
     Indication: BLOOD PRESSURE ABNORMAL
     Dosage: UNK
     Route: 048
     Dates: start: 2008
  18. KLOR-CON [Concomitant]
     Active Substance: POTASSIUM CHLORIDE
     Indication: BLOOD PRESSURE ABNORMAL
     Dosage: UNK
     Route: 048
     Dates: start: 2008

REACTIONS (5)
  - Application site discomfort [Recovering/Resolving]
  - Application site erythema [Recovering/Resolving]
  - Application site pain [Recovering/Resolving]
  - Wrong technique in product usage process [Unknown]
  - Application site inflammation [Recovering/Resolving]

NARRATIVE: CASE EVENT DATE: 201711
